FAERS Safety Report 5387756-9 (Version None)
Quarter: 2007Q3

REPORT INFORMATION
  Report Type: 
  Country: None (occurrence: None)
  Receive Date: 20070716
  Receipt Date: 20070705
  Transmission Date: 20080115
  Serious: Yes (Other)
  Sender: FDA-Public Use
  Company Number: B0479111A

PATIENT
  Sex: Female

DRUGS (1)
  1. SEROXAT [Suspect]
     Route: 048
     Dates: start: 20010101

REACTIONS (13)
  - ABNORMAL BEHAVIOUR [None]
  - DRUG EXPOSURE DURING PREGNANCY [None]
  - DRUG WITHDRAWAL SYNDROME [None]
  - DYSKINESIA [None]
  - ECONOMIC PROBLEM [None]
  - IMPULSIVE BEHAVIOUR [None]
  - INDIFFERENCE [None]
  - OCULAR ICTERUS [None]
  - POLYDIPSIA [None]
  - SUICIDAL IDEATION [None]
  - TRISMUS [None]
  - VOMITING [None]
  - YELLOW SKIN [None]
